FAERS Safety Report 16336077 (Version 2)
Quarter: 2019Q2

REPORT INFORMATION
  Report Type: Spontaneous
  Country: GB (occurrence: GB)
  Receive Date: 20190521
  Receipt Date: 20190528
  Transmission Date: 20190711
  Serious: Yes (Other)
  Sender: FDA-Public Use
  Company Number: GB-LEO PHARMA-318612

PATIENT
  Age: 67 Year
  Sex: Female
  Weight: 60 kg

DRUGS (2)
  1. THYROXINE [Concomitant]
     Active Substance: LEVOTHYROXINE
     Indication: PRODUCT USED FOR UNKNOWN INDICATION
  2. PICATO [Suspect]
     Active Substance: INGENOL MEBUTATE
     Indication: ACTINIC KERATOSIS
     Dosage: 150MCG/G THREE APPLICATIONS (DELAYED 2ND APPLICATION BY ONE DAY).
     Route: 061
     Dates: start: 20190101, end: 20190104

REACTIONS (5)
  - Blindness unilateral [Unknown]
  - Application site oedema [Unknown]
  - Allergic keratitis [Recovered/Resolved with Sequelae]
  - Application site vesicles [Unknown]
  - Inappropriate schedule of product administration [Unknown]

NARRATIVE: CASE EVENT DATE: 20190102
